FAERS Safety Report 12746534 (Version 3)
Quarter: 2017Q1

REPORT INFORMATION
  Report Type: Spontaneous
  Country: US (occurrence: US)
  Receive Date: 20160915
  Receipt Date: 20170113
  Transmission Date: 20170428
  Serious: Yes (Hospitalization, Other)
  Sender: FDA-Public Use
  Company Number: US-BAYER-2016-105130

PATIENT
  Age: 69 Year
  Sex: Male

DRUGS (5)
  1. XARELTO [Suspect]
     Active Substance: RIVAROXABAN
     Indication: CEREBROVASCULAR ACCIDENT
  2. XARELTO [Suspect]
     Active Substance: RIVAROXABAN
     Indication: ARTERIAL DISORDER
  3. XARELTO [Suspect]
     Active Substance: RIVAROXABAN
     Indication: CEREBROVASCULAR ACCIDENT PROPHYLAXIS
     Dosage: 20 MG, QD
     Route: 048
     Dates: start: 20140616, end: 20150423
  4. XARELTO [Suspect]
     Active Substance: RIVAROXABAN
     Indication: ATRIAL FIBRILLATION
  5. ACETYLSALICYLIC ACID({=100 MG) [Suspect]
     Active Substance: ASPIRIN
     Indication: PRODUCT USED FOR UNKNOWN INDICATION
     Dosage: 81 MG, UNK
     Route: 048
     Dates: end: 20150530

REACTIONS (7)
  - Cerebrovascular accident [Recovering/Resolving]
  - Internal haemorrhage [Unknown]
  - Hypertension [Unknown]
  - Abdominal wall haematoma [Unknown]
  - Epistaxis [Unknown]
  - Dyspnoea [Unknown]
  - Troponin [Unknown]

NARRATIVE: CASE EVENT DATE: 20150113
